FAERS Safety Report 6166943-6 (Version None)
Quarter: 2009Q2

REPORT INFORMATION
  Report Type: 
  Country: None (occurrence: None)
  Receive Date: 20090424
  Receipt Date: 20090421
  Transmission Date: 20091009
  Serious: Yes (Death)
  Sender: FDA-Public Use
  Company Number: JP-AVENTIS-200911192JP

PATIENT
  Age: 67 Year
  Sex: Female

DRUGS (2)
  1. TAXOTERE [Suspect]
     Route: 041
     Dates: start: 20090406, end: 20090406
  2. FEC [Concomitant]

REACTIONS (1)
  - INTERSTITIAL LUNG DISEASE [None]
